FAERS Safety Report 25734607 (Version 1)
Quarter: 2025Q3

REPORT INFORMATION
  Report Type: Spontaneous
  Country: US (occurrence: US)
  Receive Date: 20250828
  Receipt Date: 20250828
  Transmission Date: 20251020
  Serious: Yes (Other)
  Sender: ASTELLAS
  Company Number: US-ASTELLAS-2025-AER-046211

PATIENT
  Age: 82 Year
  Sex: Male

DRUGS (2)
  1. TACROLIMUS [Suspect]
     Active Substance: TACROLIMUS
     Indication: Lung transplant
     Route: 065
  2. TACROLIMUS [Suspect]
     Active Substance: TACROLIMUS
     Route: 065

REACTIONS (7)
  - Candida infection [Unknown]
  - Cutaneous malacoplakia [Unknown]
  - Pneumonia [Unknown]
  - Serratia infection [Unknown]
  - Mycobacterium kansasii infection [Unknown]
  - Escherichia infection [Unknown]
  - Malassezia infection [Unknown]
